FAERS Safety Report 9513461 (Version 1)
Quarter: 2013Q3

REPORT INFORMATION
  Report Type: Spontaneous
  Country: US (occurrence: US)
  Receive Date: 20130910
  Receipt Date: 20130910
  Transmission Date: 20140515
  Serious: No
  Sender: FDA-Public Use
  Company Number: US-TARO-2013P1003042

PATIENT
  Age: 93 Year
  Sex: Female
  Weight: 45.36 kg

DRUGS (2)
  1. WARFARIN SODIUM TABLETS USP 4MG [Suspect]
     Dates: start: 2008, end: 20130303
  2. WARFARIN SODIUM TABLETS USP 4MG [Suspect]
     Route: 048
     Dates: start: 20130304

REACTIONS (1)
  - International normalised ratio increased [Not Recovered/Not Resolved]
